FAERS Safety Report 7978267-2 (Version None)
Quarter: 2011Q4

REPORT INFORMATION
  Report Type: 
  Country: None (occurrence: None)
  Receive Date: 20111214
  Receipt Date: 20111129
  Transmission Date: 20120403
  Serious: Yes (Other)
  Sender: FDA-Public Use
  Company Number: JP-PFIZER INC-2011301001

PATIENT
  Age: 69 Year
  Sex: Male
  Weight: 62 kg

DRUGS (5)
  1. LEVOLEUCOVORIN CALCIUM [Concomitant]
     Indication: COLORECTAL CANCER
     Dosage: 300 MG/BODY (186.3 MG/M2)
     Route: 041
     Dates: start: 20110311, end: 20110707
  2. VECTIBIX [Concomitant]
     Indication: COLORECTAL CANCER
     Dosage: 370 MG/BODY
     Route: 041
     Dates: start: 20110311, end: 20110721
  3. FLUOROURACIL [Concomitant]
     Dosage: 1750 MG/BODY/D1-2 (1087 MG/M2/D1-2)
     Route: 041
     Dates: start: 20110311, end: 20110707
  4. CAMPTOSAR [Suspect]
     Indication: COLORECTAL CANCER
     Dosage: 240 MG/BODY (149.1 MG/M2)
     Route: 041
     Dates: start: 20110311, end: 20110707
  5. FLUOROURACIL [Concomitant]
     Indication: COLORECTAL CANCER
     Dosage: 625 MG/BODY (388.2 MG/M2)
     Route: 040
     Dates: start: 20110311, end: 20110707

REACTIONS (4)
  - HEPATIC CANCER METASTATIC [None]
  - DIARRHOEA [None]
  - PYREXIA [None]
  - COLITIS ISCHAEMIC [None]
